FAERS Safety Report 7514911-1 (Version None)
Quarter: 2011Q2

REPORT INFORMATION
  Report Type: 
  Country: None (occurrence: None)
  Receive Date: 20110425
  Receipt Date: 20090505
  Transmission Date: 20111010
  Serious: Yes (Hospitalization)
  Sender: FDA-Public Use
  Company Number: MC200900184

PATIENT
  Age: 51 Year
  Sex: Female
  Weight: 51 kg

DRUGS (6)
  1. LISINOPRIL/HCTZ (HYDROCHLOROTHIAZIDE, LISINOPRIL) [Concomitant]
  2. LIPITOR [Concomitant]
  3. ASPIRIN [Concomitant]
  4. PLAVIX [Concomitant]
  5. TOPROL-XL [Concomitant]
  6. ANGIOMAX [Suspect]
     Indication: PERCUTANEOUS CORONARY INTERVENTION
     Dosage: 7.5, BOLUS, INTRAVENOUS
     Route: 042
     Dates: start: 20060227, end: 20060227

REACTIONS (1)
  - CHEST PAIN [None]
